FAERS Safety Report 4687737-4 (Version None)
Quarter: 2005Q2

REPORT INFORMATION
  Report Type: 
  Country: None (occurrence: None)
  Receive Date: 20050610
  Receipt Date: 20031016
  Transmission Date: 20051028
  Serious: Yes (Death, Hospitalization)
  Sender: FDA-Public Use
  Company Number: ES-SANOFI-SYNTHELABO-D01200301449

PATIENT
  Sex: Male
  Weight: 81 kg

DRUGS (9)
  1. PLACEBO [Suspect]
     Indication: COLORECTAL CANCER METASTATIC
     Route: 048
     Dates: start: 20030407, end: 20031008
  2. OXALIPLATIN [Suspect]
     Route: 042
     Dates: start: 20030924, end: 20030924
  3. FLUOROURACIL [Suspect]
     Dosage: 400 MG/M2 AS IV BOLUS THEN 600 MG/M2 AS 22 HOURS CONTINUOUS INFUSION D1-D2 Q2W
     Route: 042
     Dates: start: 20030924, end: 20030925
  4. LEUCOVORIN CALCIUM [Suspect]
     Dosage: 200 MG/M2 AS 2 HOURS INFUSION ON D1-D2 Q2W
     Route: 042
     Dates: start: 20030924, end: 20030925
  5. PLAVIX [Interacting]
     Dosage: UNK
     Route: 065
     Dates: start: 20020515, end: 20031025
  6. OMEPRAZOLE [Concomitant]
  7. ADIRO [Concomitant]
  8. BENESTAN [Concomitant]
  9. URBASON [Concomitant]

REACTIONS (1)
  - INTERSTITIAL LUNG DISEASE [None]
